FAERS Safety Report 16341601 (Version 1)
Quarter: 2019Q2

REPORT INFORMATION
  Report Type: Spontaneous
  Country: US (occurrence: US)
  Receive Date: 20190522
  Receipt Date: 20190522
  Transmission Date: 20190711
  Serious: No
  Sender: FDA-Public Use
  Company Number: US-ASTRAZENECA-2019SE62877

PATIENT
  Age: 30834 Day
  Sex: Female
  Weight: 38.6 kg

DRUGS (1)
  1. SYMBICORT [Suspect]
     Active Substance: BUDESONIDE\FORMOTEROL FUMARATE DIHYDRATE
     Dosage: 160/4.5 MCG 2 PUFFS
     Route: 055

REACTIONS (3)
  - Hypoacusis [Unknown]
  - Weight decreased [Not Recovered/Not Resolved]
  - Macular degeneration [Unknown]

NARRATIVE: CASE EVENT DATE: 201902
